FAERS Safety Report 9706233 (Version 3)
Quarter: 2014Q1

REPORT INFORMATION
  Report Type: Spontaneous
  Country: VE (occurrence: VE)
  Receive Date: 20131125
  Receipt Date: 20140123
  Transmission Date: 20141002
  Serious: Yes (Other)
  Sender: FDA-Public Use
  Company Number: VE-AMGEN-VENSP2013082121

PATIENT
  Age: 61 Year
  Sex: Female

DRUGS (1)
  1. ENBREL [Suspect]
     Indication: PSORIASIS
     Dosage: 25 MG, 2X/WEEK
     Route: 058
     Dates: start: 2010

REACTIONS (2)
  - Fall [Recovered/Resolved]
  - Bone decalcification [Not Recovered/Not Resolved]
